FAERS Safety Report 18777056 (Version 1)
Quarter: 2021Q1

REPORT INFORMATION
  Report Type: Spontaneous
  Country: AT (occurrence: AT)
  Receive Date: 20210123
  Receipt Date: 20210123
  Transmission Date: 20210419
  Serious: Yes (Hospitalization)
  Sender: FDA-Public Use
  Company Number: AT-ACCORD-211482

PATIENT
  Age: 42 Year
  Sex: Female

DRUGS (9)
  1. ABILIFY [Concomitant]
     Active Substance: ARIPIPRAZOLE
     Dates: start: 20201112, end: 20201113
  2. SERTRALINE [Suspect]
     Active Substance: SERTRALINE HYDROCHLORIDE
     Indication: PRODUCT USED FOR UNKNOWN INDICATION
     Dates: start: 20201111, end: 20201116
  3. TEMESTA [Concomitant]
     Dates: start: 20201117, end: 20201120
  4. SERTRALINE [Suspect]
     Active Substance: SERTRALINE HYDROCHLORIDE
     Indication: PRODUCT USED FOR UNKNOWN INDICATION
     Dates: start: 20201117
  5. RISPERDAL [Concomitant]
     Active Substance: RISPERIDONE
     Dates: start: 20201113
  6. ABILIFY [Concomitant]
     Active Substance: ARIPIPRAZOLE
     Dates: start: 20201108, end: 20201111
  7. TEMESTA [Concomitant]
     Dates: start: 20201108, end: 20201116
  8. SERTRALINE [Suspect]
     Active Substance: SERTRALINE HYDROCHLORIDE
     Indication: PRODUCT USED FOR UNKNOWN INDICATION
     Dates: start: 20201105, end: 20201108
  9. TEMESTA [Concomitant]
     Dates: start: 20201121, end: 20201124

REACTIONS (3)
  - Suicidal ideation [Recovered/Resolved]
  - Akathisia [Recovered/Resolved]
  - Thinking abnormal [Recovering/Resolving]

NARRATIVE: CASE EVENT DATE: 202011
